FAERS Safety Report 7121824-6 (Version None)
Quarter: 2010Q4

REPORT INFORMATION
  Report Type: 
  Country: None (occurrence: None)
  Receive Date: 20101124
  Receipt Date: 20101112
  Transmission Date: 20110411
  Serious: Yes (Other)
  Sender: FDA-Public Use
  Company Number: PHHY2010CA49337

PATIENT
  Sex: Female

DRUGS (1)
  1. SANDOSTATIN LAR [Suspect]
     Indication: CARCINOID TUMOUR
     Dosage: 30 MG EVERY 3  WEEKS
     Route: 030
     Dates: start: 20021020

REACTIONS (4)
  - ABDOMINAL PAIN [None]
  - DYSURIA [None]
  - LITHOTRIPSY [None]
  - URETERAL STENT INSERTION [None]
